FAERS Safety Report 6975159-2 (Version None)
Quarter: 2010Q3

REPORT INFORMATION
  Report Type: 
  Country: None (occurrence: None)
  Receive Date: 20100910
  Receipt Date: 20090205
  Transmission Date: 20110219
  Serious: No
  Sender: FDA-Public Use
  Company Number: US-WYE-H08121309

PATIENT
  Sex: Female
  Weight: 52.21 kg

DRUGS (6)
  1. PRISTIQ [Suspect]
     Indication: DEPRESSION
     Route: 048
     Dates: start: 20080901
  2. ZYPREXA [Concomitant]
  3. TRAMADOL HCL [Concomitant]
  4. PROPRANOLOL [Concomitant]
  5. NEXIUM [Concomitant]
  6. MUCINEX [Concomitant]

REACTIONS (1)
  - AMENORRHOEA [None]
